FAERS Safety Report 14848371 (Version 1)
Quarter: 2018Q2

REPORT INFORMATION
  Report Type: Report from Study
  Country: SI (occurrence: SI)
  Receive Date: 20180504
  Receipt Date: 20180504
  Transmission Date: 20180711
  Serious: Yes (Hospitalization)
  Sender: FDA-Public Use
  Company Number: SI-BAYER-2018-059389

PATIENT
  Age: 62 Year
  Sex: Male

DRUGS (2)
  1. STIVARGA [Suspect]
     Active Substance: REGORAFENIB
     Indication: COLORECTAL CANCER METASTATIC
     Dosage: 120 MG DAILY
     Route: 048
     Dates: start: 2018, end: 20180419
  2. STIVARGA [Suspect]
     Active Substance: REGORAFENIB
     Indication: COLORECTAL CANCER METASTATIC
     Dosage: DAILY DOSE 80 MG
     Route: 048
     Dates: start: 20180322

REACTIONS (6)
  - Rash [Not Recovered/Not Resolved]
  - Rash [Recovered/Resolved]
  - Fatigue [Not Recovered/Not Resolved]
  - Peripheral swelling [Not Recovered/Not Resolved]
  - Dysphonia [Not Recovered/Not Resolved]
  - Off label use [None]

NARRATIVE: CASE EVENT DATE: 20180325
